FAERS Safety Report 19397867 (Version 3)
Quarter: 2022Q1

REPORT INFORMATION
  Report Type: Spontaneous
  Country: US (occurrence: US)
  Receive Date: 20210610
  Receipt Date: 20220124
  Transmission Date: 20220424
  Serious: Yes (Other)
  Sender: FDA-Public Use
  Company Number: US-GILEAD-2021-0534880

PATIENT
  Age: 48 Year
  Sex: Male
  Weight: 104.31 kg

DRUGS (42)
  1. ATRIPLA [Suspect]
     Active Substance: EFAVIRENZ\EMTRICITABINE\TENOFOVIR DISOPROXIL FUMARATE
     Indication: HIV infection
     Dosage: UNK
     Route: 048
     Dates: start: 20090302, end: 201111
  2. TRUVADA [Suspect]
     Active Substance: EMTRICITABINE\TENOFOVIR DISOPROXIL FUMARATE
     Indication: HIV infection
     Dosage: UNK
     Route: 048
     Dates: start: 2009
  3. TRUVADA [Suspect]
     Active Substance: EMTRICITABINE\TENOFOVIR DISOPROXIL FUMARATE
     Dosage: UNK
     Route: 048
     Dates: start: 20111128, end: 20120806
  4. BIKTARVY [Concomitant]
     Active Substance: BICTEGRAVIR SODIUM\EMTRICITABINE\TENOFOVIR ALAFENAMIDE FUMARATE
  5. EMTRIVA [Concomitant]
     Active Substance: EMTRICITABINE
  6. EPIVIR [Concomitant]
     Active Substance: LAMIVUDINE
  7. ISENTRESS [Concomitant]
     Active Substance: RALTEGRAVIR POTASSIUM
  8. NORVIR [Concomitant]
     Active Substance: RITONAVIR
  9. REYATAZ [Concomitant]
     Active Substance: ATAZANAVIR SULFATE
  10. TRIUMEQ [Concomitant]
     Active Substance: ABACAVIR SULFATE\DOLUTEGRAVIR SODIUM\LAMIVUDINE
  11. ACYCLOVIR [Concomitant]
     Active Substance: ACYCLOVIR
  12. BENZONATATE [Concomitant]
     Active Substance: BENZONATATE
  13. CELEBREX [Concomitant]
     Active Substance: CELECOXIB
  14. CHLORHEXIDINE [Concomitant]
     Active Substance: CHLORHEXIDINE
  15. CRESTOR [Concomitant]
     Active Substance: ROSUVASTATIN CALCIUM
  16. CYTOMEL [Concomitant]
     Active Substance: LIOTHYRONINE SODIUM
  17. FLUCONAZOLE [Concomitant]
     Active Substance: FLUCONAZOLE
  18. GABAPENTIN [Concomitant]
     Active Substance: GABAPENTIN
  19. HYDROCODONE [Concomitant]
     Active Substance: HYDROCODONE
  20. LAMIVUDINE [Concomitant]
     Active Substance: LAMIVUDINE
  21. LANTUS [Concomitant]
     Active Substance: INSULIN GLARGINE
  22. LEVOTHYROXINE [Concomitant]
     Active Substance: LEVOTHYROXINE
  23. LISINOPRIL [Concomitant]
     Active Substance: LISINOPRIL
  24. LYRICA [Concomitant]
     Active Substance: PREGABALIN
  25. MECLIZINE [Concomitant]
     Active Substance: MECLIZINE HYDROCHLORIDE
  26. METHYLPREDNISOLONE [Concomitant]
     Active Substance: METHYLPREDNISOLONE
  27. NORVASC [Concomitant]
     Active Substance: AMLODIPINE BESYLATE
  28. INSULIN HUMAN [Concomitant]
     Active Substance: INSULIN HUMAN
  29. NYSTATIN [Concomitant]
     Active Substance: NYSTATIN
  30. OXYCODONE [Concomitant]
     Active Substance: OXYCODONE
  31. PLAVIX [Concomitant]
     Active Substance: CLOPIDOGREL BISULFATE
  32. PRAVASTATIN [Concomitant]
     Active Substance: PRAVASTATIN
  33. PREDNISOLONE [Concomitant]
     Active Substance: PREDNISOLONE
  34. PROPOXYPHENE [Concomitant]
     Active Substance: PROPOXYPHENE
  35. SIMVASTATIN [Concomitant]
     Active Substance: SIMVASTATIN
  36. SUCRALFATE [Concomitant]
     Active Substance: SUCRALFATE
  37. SYNTHROID [Concomitant]
     Active Substance: LEVOTHYROXINE SODIUM
  38. TRAMADOL [Concomitant]
     Active Substance: TRAMADOL
  39. VALCYTE [Concomitant]
     Active Substance: VALGANCICLOVIR HYDROCHLORIDE
  40. VIAGRA [Concomitant]
     Active Substance: SILDENAFIL CITRATE
  41. WARFARIN [Concomitant]
     Active Substance: WARFARIN
  42. ZETIA [Concomitant]
     Active Substance: EZETIMIBE

REACTIONS (10)
  - Chronic kidney disease [Not Recovered/Not Resolved]
  - Renal failure [Unknown]
  - Emotional distress [Not Recovered/Not Resolved]
  - Anhedonia [Not Recovered/Not Resolved]
  - Dysstasia [Not Recovered/Not Resolved]
  - Back pain [Not Recovered/Not Resolved]
  - Asthenia [Unknown]
  - Anxiety [Not Recovered/Not Resolved]
  - Pain [Not Recovered/Not Resolved]
  - Depression [Recovered/Resolved]

NARRATIVE: CASE EVENT DATE: 20100215
